FAERS Safety Report 13328737 (Version 1)
Quarter: 2017Q1

REPORT INFORMATION
  Report Type: Spontaneous
  Country: US (occurrence: US)
  Receive Date: 20170311
  Receipt Date: 20170311
  Transmission Date: 20170428
  Serious: Yes (Other)
  Sender: FDA-Public Use
  Company Number: None

PATIENT
  Age: 21 Year
  Sex: Female
  Weight: 64 kg

DRUGS (7)
  1. VITAMIN C AND D [Concomitant]
  2. 5-HTP [Concomitant]
     Active Substance: OXITRIPTAN
  3. MINT-CIPROFLOXACIN [Suspect]
     Active Substance: CIPROFLOXACIN
     Indication: URINARY TRACT INFECTION
     Dosage: ?          QUANTITY:1 TABLET(S);?
     Route: 048
     Dates: start: 20170207, end: 20170212
  4. IRON [Concomitant]
     Active Substance: IRON
  5. OMEGA 3 [Concomitant]
     Active Substance: OMEGA-3 FATTY ACIDS
  6. VITAMIN B12 [Concomitant]
     Active Substance: CYANOCOBALAMIN
  7. ADVIL [Concomitant]
     Active Substance: IBUPROFEN

REACTIONS (3)
  - Pain in extremity [None]
  - Paraesthesia [None]
  - Muscular weakness [None]

NARRATIVE: CASE EVENT DATE: 20170208
